FAERS Safety Report 21866805 (Version 2)
Quarter: 2023Q1

REPORT INFORMATION
  Report Type: Report from Study
  Country: US (occurrence: US)
  Receive Date: 20230116
  Receipt Date: 20230213
  Transmission Date: 20230417
  Serious: Yes (Hospitalization, Other)
  Sender: FDA-Public Use
  Company Number: US-ABBVIE-22K-163-4497791-00

PATIENT
  Age: 77 Year
  Sex: Male

DRUGS (2)
  1. DUOPA [Suspect]
     Active Substance: CARBIDOPA\LEVODOPA
     Indication: Parkinson^s disease
     Dosage: 100ML INTO 7?CONTENTS OF 1 CASSETTE VIA PEG-J FOR UP TO 16 HOURS EACH DAY. MORNING DOSE: 11 ML (R...
     Route: 050
     Dates: start: 20220408, end: 2022
  2. DUOPA [Suspect]
     Active Substance: CARBIDOPA\LEVODOPA
     Route: 050
     Dates: start: 20220411

REACTIONS (9)
  - Transient ischaemic attack [Recovering/Resolving]
  - Hallucination [Unknown]
  - Incorrect route of product administration [Recovered/Resolved]
  - Confusional state [Unknown]
  - Device connection issue [Unknown]
  - Asthenia [Unknown]
  - Dysarthria [Unknown]
  - Parkinson^s disease [Not Recovered/Not Resolved]
  - Gait disturbance [Unknown]

NARRATIVE: CASE EVENT DATE: 20221201
